FAERS Safety Report 8144276-6 (Version None)
Quarter: 2012Q1

REPORT INFORMATION
  Report Type: 
  Country: None (occurrence: None)
  Receive Date: 20120217
  Receipt Date: 20120209
  Transmission Date: 20120608
  Serious: Yes (Hospitalization)
  Sender: FDA-Public Use
  Company Number: US-AMGEN-USASP2012008941

PATIENT
  Age: 21 Year
  Sex: Female

DRUGS (1)
  1. ENBREL [Suspect]
     Indication: RHEUMATOID ARTHRITIS
     Dosage: 50 MG, Q3WK
     Dates: start: 20000101

REACTIONS (7)
  - DYSPNOEA [None]
  - ARTHRALGIA [None]
  - HYPERVENTILATION [None]
  - MUSCLE SPASMS [None]
  - ARTHRITIS [None]
  - MOBILITY DECREASED [None]
  - TREMOR [None]
